FAERS Safety Report 13169339 (Version 1)
Quarter: 2017Q1

REPORT INFORMATION
  Report Type: Spontaneous
  Country: US (occurrence: US)
  Receive Date: 20170201
  Receipt Date: 20170201
  Transmission Date: 20170428
  Serious: Yes (Other)
  Sender: FDA-Public Use
  Company Number: US-ROCHE-1886993

PATIENT
  Age: 20 Year
  Sex: Female

DRUGS (1)
  1. RITUXAN [Suspect]
     Active Substance: RITUXIMAB
     Indication: IMMUNE THROMBOCYTOPENIC PURPURA
     Route: 065
     Dates: start: 2010

REACTIONS (4)
  - Osteoporosis [Unknown]
  - Systemic lupus erythematosus [Unknown]
  - Stevens-Johnson syndrome [Unknown]
  - Off label use [Unknown]
